FAERS Safety Report 6221351-4 (Version None)
Quarter: 2009Q2

REPORT INFORMATION
  Report Type: 
  Country: None (occurrence: None)
  Receive Date: 20090610
  Receipt Date: 20090602
  Transmission Date: 20091009
  Serious: Yes (Other)
  Sender: FDA-Public Use
  Company Number: US-ROCHE-627861

PATIENT
  Sex: Male

DRUGS (2)
  1. ACCUTANE [Suspect]
     Route: 048
  2. ACCUTANE [Suspect]
     Dosage: DRUG: ACCUTANE (CLARIVUS)
     Route: 048
     Dates: start: 20090106

REACTIONS (1)
  - HEMIHYPERTROPHY [None]
